FAERS Safety Report 6266401-4 (Version None)
Quarter: 2009Q3

REPORT INFORMATION
  Report Type: 
  Country: None (occurrence: None)
  Receive Date: 20090709
  Receipt Date: 20090629
  Transmission Date: 20100115
  Serious: Yes (Disabling)
  Sender: FDA-Public Use
  Company Number: 313988

PATIENT
  Sex: Male

DRUGS (1)
  1. MARCAINE HCL [Suspect]
     Indication: ANALGESIA
     Dosage: CONTINUOUS, INJECTION
     Route: 011
     Dates: start: 20080101

REACTIONS (5)
  - INJURY [None]
  - MUSCULOSKELETAL DISCOMFORT [None]
  - MUSCULOSKELETAL DISORDER [None]
  - MUSCULOSKELETAL PAIN [None]
  - PAIN [None]
